FAERS Safety Report 24105792 (Version 3)
Quarter: 2024Q3

REPORT INFORMATION
  Report Type: Spontaneous
  Country: US (occurrence: US)
  Receive Date: 20240717
  Receipt Date: 20240814
  Transmission Date: 20241016
  Serious: No
  Sender: JOHNSON AND JOHNSON
  Company Number: US-JNJFOC-20240734788

PATIENT
  Age: 37 Year
  Sex: Female

DRUGS (2)
  1. TREMFYA [Suspect]
     Active Substance: GUSELKUMAB
     Indication: Psoriasis
     Dosage: STENGTH: 100 (UNIT UNSPECIFIED)
     Route: 058
  2. TREMFYA [Suspect]
     Active Substance: GUSELKUMAB
     Dosage: STENGTH: 100 (UNIT UNSPECIFIED)
     Route: 058

REACTIONS (4)
  - COVID-19 [Unknown]
  - Product preparation error [Unknown]
  - Injection site discomfort [Unknown]
  - Product administration error [Unknown]

NARRATIVE: CASE EVENT DATE: 20240620
